FAERS Safety Report 14901306 (Version 1)
Quarter: 2018Q2

REPORT INFORMATION
  Report Type: Spontaneous
  Country: US (occurrence: US)
  Receive Date: 20180429
  Receipt Date: 20180429
  Transmission Date: 20180711
  Serious: No
  Sender: FDA-Public Use
  Company Number: None

PATIENT
  Age: 40 Year
  Sex: Male
  Weight: 99.45 kg

DRUGS (1)
  1. VENLAFAXINE XR 37.5MG [Suspect]
     Active Substance: VENLAFAXINE HYDROCHLORIDE
     Indication: ANXIETY
     Dates: start: 20180424, end: 20180428

REACTIONS (4)
  - Hyperhidrosis [None]
  - Product substitution issue [None]
  - Drug ineffective [None]
  - Abdominal pain upper [None]

NARRATIVE: CASE EVENT DATE: 20180425
